FAERS Safety Report 15917188 (Version 1)
Quarter: 2019Q1

REPORT INFORMATION
  Report Type: Spontaneous
  Country: PT (occurrence: PT)
  Receive Date: 20190205
  Receipt Date: 20190205
  Transmission Date: 20190417
  Serious: Yes (Other)
  Sender: FDA-Public Use
  Company Number: PT-ACCORD-105629

PATIENT
  Age: 42 Year
  Sex: Female
  Weight: 92 kg

DRUGS (13)
  1. SALBUTAMOL [Concomitant]
     Active Substance: ALBUTEROL
     Route: 055
  2. PREDNISOLONE. [Concomitant]
     Active Substance: PREDNISOLONE
     Route: 048
  3. ONDANSETRON [Concomitant]
     Active Substance: ONDANSETRON
     Route: 042
  4. DEXAMETHASONE. [Concomitant]
     Active Substance: DEXAMETHASONE
     Dosage: IV ON THE DAY OF THE CYCLE AND ON DAYS 2 AND 3
  5. ENDOXAN [Suspect]
     Active Substance: CYCLOPHOSPHAMIDE
     Indication: BREAST CANCER
     Dosage: 1000 MG IN 250 ML NACL, INFUSION 30 MIN, CYCLES 3/3 WEEKS
     Route: 042
     Dates: start: 20180105
  6. IPRATROPIUM [Concomitant]
     Active Substance: IPRATROPIUM
     Route: 055
  7. LORAZEPAM. [Concomitant]
     Active Substance: LORAZEPAM
  8. PROPRANOLOL [Concomitant]
     Active Substance: PROPRANOLOL HYDROCHLORIDE
     Route: 048
  9. EPIRUBICIN ACCORD [Suspect]
     Active Substance: EPIRUBICIN HYDROCHLORIDE
     Indication: BREAST CANCER
     Dosage: 200MG IN 100 ML NACL,PERFUSION 10 MIN, CYCLES 3/3 WEEKS
     Route: 042
     Dates: start: 20180105
  10. HYDROXYZINE [Concomitant]
     Active Substance: HYDROXYZINE HYDROCHLORIDE
     Route: 048
  11. EBASTINE [Concomitant]
     Active Substance: EBASTINE
     Route: 048
  12. FLUOROURACIL ACCORD [Suspect]
     Active Substance: FLUOROURACIL
     Indication: BREAST CANCER
     Dosage: 1000MG IN 100 ML NACL,INFUSION 10 MIN, CYCLES 3/3 WEEKS
     Route: 042
     Dates: start: 20180105
  13. APREPITANT. [Concomitant]
     Active Substance: APREPITANT
     Route: 042

REACTIONS (3)
  - Lip oedema [Recovered/Resolved]
  - Throat irritation [Recovered/Resolved]
  - Urticaria [Recovered/Resolved]

NARRATIVE: CASE EVENT DATE: 20180109
